FAERS Safety Report 8615183-7 (Version None)
Quarter: 2012Q3

REPORT INFORMATION
  Report Type: 
  Country: None (occurrence: None)
  Receive Date: 20120823
  Receipt Date: 20120816
  Transmission Date: 20120928
  Serious: Yes (Hospitalization)
  Sender: FDA-Public Use
  Company Number: US-INCYTE CORPORATION-2012IN001495

PATIENT
  Sex: Female

DRUGS (2)
  1. HYDROXYUREA [Concomitant]
     Dosage: 500 MG, QD
  2. JAKAFI [Suspect]
     Indication: MYELOFIBROSIS
     Dosage: 10 MG, BID
     Route: 048
     Dates: start: 20120601

REACTIONS (3)
  - TREATMENT NONCOMPLIANCE [None]
  - FALL [None]
  - HIP FRACTURE [None]
